FAERS Safety Report 8929074 (Version 2)
Quarter: 2012Q4

REPORT INFORMATION
  Report Type: 
  Country: US (occurrence: US)
  Receive Date: 20121128
  Receipt Date: 20121220
  Transmission Date: 20130627
  Serious: No
  Sender: FDA-Public Use
  Company Number: US-BIOGENIDEC-2012BI053631

PATIENT
  Sex: Female

DRUGS (6)
  1. AVONEX [Suspect]
     Indication: MULTIPLE SCLEROSIS
     Route: 030
     Dates: start: 19981029, end: 2003
  2. AVONEX [Suspect]
     Indication: MULTIPLE SCLEROSIS
     Route: 030
     Dates: start: 2003
  3. TYLENOL [Concomitant]
     Indication: PREMEDICATION
  4. LOPRESSOR [Concomitant]
     Indication: HYPERTENSION
     Route: 048
  5. DIOVAN HCT [Concomitant]
     Indication: HYPERTENSION
  6. VALSARTAN [Concomitant]
     Dates: start: 20120320

REACTIONS (13)
  - Visual acuity reduced [Not Recovered/Not Resolved]
  - Thyroid disorder [Not Recovered/Not Resolved]
  - Hypertension [Unknown]
  - Weight increased [Not Recovered/Not Resolved]
  - Tympanic membrane perforation [Not Recovered/Not Resolved]
  - Cough [Recovered/Resolved]
  - Urinary tract infection [Recovered/Resolved]
  - Kidney duplex [Not Recovered/Not Resolved]
  - Aphonia [Recovered/Resolved]
  - Benign neoplasm of thyroid gland [Recovered/Resolved]
  - Asthenia [Recovered/Resolved]
  - Decreased appetite [Recovered/Resolved]
  - Multiple sclerosis relapse [Recovered/Resolved]
